FAERS Safety Report 8182623-X (Version None)
Quarter: 2012Q1

REPORT INFORMATION
  Report Type: 
  Country: None (occurrence: None)
  Receive Date: 20120301
  Receipt Date: 20120301
  Transmission Date: 20120608
  Serious: Yes (Other)
  Sender: FDA-Public Use
  Company Number: None

PATIENT
  Sex: Male
  Weight: 77.1115 kg

DRUGS (1)
  1. HYDRALAZINE HCL [Suspect]
     Indication: BLOOD PRESSURE
     Dosage: 50MG 3X/DAY ORAL
     Route: 048
     Dates: start: 20111209

REACTIONS (3)
  - RENAL DISORDER [None]
  - WEIGHT INCREASED [None]
  - MULTIPLE MYELOMA [None]
